FAERS Safety Report 6741783-5 (Version None)
Quarter: 2010Q2

REPORT INFORMATION
  Report Type: 
  Country: None (occurrence: None)
  Receive Date: 20100526
  Receipt Date: 20100513
  Transmission Date: 20101027
  Serious: Yes (Other)
  Sender: FDA-Public Use
  Company Number: US-SANOFI-AVENTIS-2010SA028175

PATIENT
  Age: 85 Year
  Sex: Male

DRUGS (2)
  1. LOVENOX [Suspect]
     Indication: DEEP VEIN THROMBOSIS
     Route: 058
     Dates: start: 20100511
  2. HEPARIN [Concomitant]
     Dates: start: 20100429

REACTIONS (13)
  - ABASIA [None]
  - AGITATION [None]
  - ANXIETY [None]
  - ASTHENIA [None]
  - CONFUSIONAL STATE [None]
  - COUGH [None]
  - DYSPNOEA [None]
  - HALLUCINATION [None]
  - INJECTION SITE HAEMATOMA [None]
  - NIGHTMARE [None]
  - OEDEMA PERIPHERAL [None]
  - PANIC ATTACK [None]
  - SKIN DISCOLOURATION [None]
